FAERS Safety Report 7420879-9 (Version None)
Quarter: 2011Q2

REPORT INFORMATION
  Report Type: 
  Country: None (occurrence: None)
  Receive Date: 20110418
  Receipt Date: 20110412
  Transmission Date: 20111010
  Serious: Yes (Hospitalization)
  Sender: FDA-Public Use
  Company Number: A0890096A

PATIENT
  Age: 51 Year
  Sex: Female

DRUGS (2)
  1. AVANDIA [Suspect]
     Dosage: 4MG PER DAY
     Route: 048
     Dates: start: 20031104, end: 20050624
  2. AVANDAMET [Suspect]
     Route: 048
     Dates: start: 20031101, end: 20031201

REACTIONS (2)
  - MYOCARDIAL INFARCTION [None]
  - CORONARY ARTERY DISEASE [None]
